FAERS Safety Report 13134244 (Version 5)
Quarter: 2017Q2

REPORT INFORMATION
  Report Type: Spontaneous
  Country: US (occurrence: US)
  Receive Date: 20170120
  Receipt Date: 20170428
  Transmission Date: 20170830
  Serious: Yes (Other)
  Sender: FDA-Public Use
  Company Number: US-PFIZER INC-2017022585

PATIENT
  Age: 60 Year
  Sex: Female
  Weight: 106.6 kg

DRUGS (4)
  1. IBRANCE [Suspect]
     Active Substance: PALBOCICLIB
     Indication: BREAST CANCER METASTATIC
     Dosage: 125 MG, CYCLIC (DAYS 1-21 Q28 DAYS)
     Route: 048
     Dates: start: 20170102
  2. IBRANCE [Suspect]
     Active Substance: PALBOCICLIB
     Dosage: 125 MG, CYCLIC, (DAYS 1-21 EVERY 28 DAYS)
     Route: 048
     Dates: start: 20170102
  3. IBRANCE [Suspect]
     Active Substance: PALBOCICLIB
     Dosage: 125 MG, CYCLIC (DAY 1-21 Q28 DAYS)
     Route: 048
     Dates: start: 20170102
  4. LETROZOLE. [Suspect]
     Active Substance: LETROZOLE
     Dosage: UNK

REACTIONS (11)
  - Blood pressure fluctuation [Unknown]
  - Bronchitis [Unknown]
  - Limb discomfort [Unknown]
  - Paranasal sinus hypersecretion [Unknown]
  - Fatigue [Unknown]
  - Neoplasm progression [Not Recovered/Not Resolved]
  - Viral upper respiratory tract infection [Unknown]
  - Memory impairment [Unknown]
  - Renal impairment [Unknown]
  - Rhinorrhoea [Unknown]
  - Influenza [Unknown]
